FAERS Safety Report 4900892-3 (Version None)
Quarter: 2006Q1

REPORT INFORMATION
  Report Type: 
  Country: None (occurrence: None)
  Receive Date: 20060201
  Receipt Date: 20060117
  Transmission Date: 20060701
  Serious: Yes (Other)
  Sender: FDA-Public Use
  Company Number: GXKR2006PL00557

PATIENT
  Age: 21 Year
  Sex: Male

DRUGS (1)
  1. AMITRIPTYLINE [Suspect]
     Dosage: ORAL
     Route: 048

REACTIONS (4)
  - ANTICHOLINERGIC SYNDROME [None]
  - BLOOD PRESSURE DECREASED [None]
  - DRUG ABUSER [None]
  - INTENTIONAL OVERDOSE [None]
